FAERS Safety Report 6941414-5 (Version None)
Quarter: 2010Q3

REPORT INFORMATION
  Report Type: 
  Country: None (occurrence: None)
  Receive Date: 20100824
  Receipt Date: 20100824
  Transmission Date: 20110219
  Serious: Yes (Other)
  Sender: FDA-Public Use
  Company Number: None

PATIENT
  Sex: Female
  Weight: 87.5442 kg

DRUGS (1)
  1. HYDROCORTISONE 5MG QUALITEST PHARMACEUTICALS [Suspect]
     Indication: ADDISON'S DISEASE
     Dosage: 15MG DAILY IN MORNING PO ; 5 MG DAILY IN AFTERNOON PO
     Route: 048
     Dates: start: 20100715, end: 20100723

REACTIONS (3)
  - DRUG INTOLERANCE [None]
  - FATIGUE [None]
  - PRODUCT SUBSTITUTION ISSUE [None]
